FAERS Safety Report 24652238 (Version 2)
Quarter: 2025Q1

REPORT INFORMATION
  Report Type: Spontaneous
  Country: CA (occurrence: CA)
  Receive Date: 20241122
  Receipt Date: 20250123
  Transmission Date: 20250409
  Serious: Yes (Hospitalization, Other)
  Sender: TAKEDA
  Company Number: CA-TAKEDA-2024TUS117293

PATIENT
  Age: 73 Year
  Sex: Male

DRUGS (7)
  1. MESALAMINE [Suspect]
     Active Substance: MESALAMINE
     Indication: Product used for unknown indication
     Dosage: 4.8 GRAM, QD
     Dates: start: 20240628, end: 20240711
  2. CALCIUM CARBONATE [Concomitant]
     Active Substance: CALCIUM CARBONATE
     Indication: Dyspepsia
     Dosage: 200 MILLIGRAM, QD
  3. ASPIRIN [Concomitant]
     Active Substance: ASPIRIN
     Dosage: 81 MILLIGRAM, QD
  4. PHENOBARBITAL [Concomitant]
     Active Substance: PHENOBARBITAL
     Dosage: 30 MILLIGRAM, QD
  5. PHENYTOIN [Concomitant]
     Active Substance: PHENYTOIN
     Dosage: 100 MILLIGRAM, QD
  6. PHENYTOIN [Concomitant]
     Active Substance: PHENYTOIN
     Dosage: 150 MILLIGRAM, QD
  7. SIMVASTATIN [Concomitant]
     Active Substance: SIMVASTATIN
     Dosage: 40 MILLIGRAM, QD

REACTIONS (3)
  - Atrial fibrillation [Recovering/Resolving]
  - Myalgia [Recovering/Resolving]
  - Pyrexia [Recovering/Resolving]

NARRATIVE: CASE EVENT DATE: 20240704
